FAERS Safety Report 23193164 (Version 1)
Quarter: 2023Q4

REPORT INFORMATION
  Report Type: Spontaneous
  Country: US (occurrence: None)
  Receive Date: 20231115
  Receipt Date: 20231115
  Transmission Date: 20240110
  Serious: Yes (Congenital Anomaly, Other)
  Sender: FDA-Public Use
  Company Number: None

PATIENT
  Age: 0 Year
  Sex: Female
  Weight: 3.13 kg

DRUGS (1)
  1. ARIPIPRAZOLE [Suspect]
     Active Substance: ARIPIPRAZOLE

REACTIONS (11)
  - Foetal exposure during pregnancy [None]
  - Ventricular septal defect [None]
  - Patent ductus arteriosus [None]
  - Dyspnoea [None]
  - Dysphagia [None]
  - Gastrooesophageal reflux disease [None]
  - Akathisia [None]
  - Brain injury [None]
  - Hyperreflexia [None]
  - Intraventricular haemorrhage neonatal [None]
  - Dysmorphism [None]

NARRATIVE: CASE EVENT DATE: 20190915
